FAERS Safety Report 6712306-1 (Version None)
Quarter: 2010Q2

REPORT INFORMATION
  Report Type: 
  Country: None (occurrence: None)
  Receive Date: 20100505
  Receipt Date: 20100421
  Transmission Date: 20101027
  Serious: Yes (Hospitalization)
  Sender: FDA-Public Use
  Company Number: DE-MYLANLABS-2009S1009449

PATIENT
  Age: 94 Year
  Sex: Male

DRUGS (10)
  1. GABAPENTIN [Interacting]
     Indication: PARTIAL SEIZURES
     Route: 048
     Dates: start: 20061001
  2. ZOLPIDEM [Interacting]
     Indication: SLEEP DISORDER
     Route: 048
  3. FENTANYL HEXAL [Suspect]
     Indication: PAIN
     Dosage: SEIT DEM 13.05.09 DOSISERHOHUNG VON 12.5 AUF 50 ?G/H, REDUKTION AUF 25 ?G/H AB DEM 16.05.09
     Route: 062
     Dates: start: 20090101
  4. MELNEURIN [Suspect]
     Indication: DEMENTIA OF THE ALZHEIMER'S TYPE, WITH DEPRESSED MOOD
     Dosage: DOSISREDUKTION AUF 2X25 MG AB DEM 16.05.09
     Route: 048
     Dates: start: 20090513
  5. INSULIN [Concomitant]
     Indication: TYPE 2 DIABETES MELLITUS
     Dosage: 30-12-10 IU
     Route: 058
     Dates: start: 19950101
  6. INSULIN PROTAPHAN HUMAN [Concomitant]
     Indication: TYPE 2 DIABETES MELLITUS
     Route: 058
     Dates: start: 19950101
  7. TORSEMIDE [Concomitant]
     Indication: DIABETIC NEPHROPATHY
     Route: 048
  8. OMEPRAZOLE [Concomitant]
     Indication: PROPHYLAXIS AGAINST GASTROINTESTINAL ULCER
     Route: 048
  9. CITALOPRAM HYDROBROMIDE [Concomitant]
     Indication: DEPRESSION
     Route: 048
     Dates: start: 20090101
  10. LACTULOSE [Concomitant]
     Indication: CONSTIPATION
     Route: 048

REACTIONS (1)
  - SOMNOLENCE [None]
